FAERS Safety Report 4534062-8 (Version None)
Quarter: 2004Q4

REPORT INFORMATION
  Report Type: 
  Country: None (occurrence: None)
  Receive Date: 20041214
  Receipt Date: 20040908
  Transmission Date: 20050328
  Serious: No
  Sender: FDA-Public Use
  Company Number: USA040876835

PATIENT
  Age: 60 Year
  Sex: Male

DRUGS (2)
  1. CIALIS [Suspect]
     Indication: ERECTILE DYSFUNCTION
     Dosage: 10 MG
  2. VALTREX [Concomitant]

REACTIONS (4)
  - DIZZINESS [None]
  - EXERCISE TOLERANCE DECREASED [None]
  - HEART RATE INCREASED [None]
  - PAIN IN EXTREMITY [None]
